FAERS Safety Report 14208401 (Version 1)
Quarter: 2017Q4

REPORT INFORMATION
  Report Type: Spontaneous
  Country: US (occurrence: US)
  Receive Date: 20171121
  Receipt Date: 20171121
  Transmission Date: 20180321
  Serious: Yes (Other)
  Sender: FDA-Public Use
  Company Number: None

PATIENT
  Age: 90 Year
  Sex: Female
  Weight: 72 kg

DRUGS (15)
  1. DILTIAZEM. [Concomitant]
     Active Substance: DILTIAZEM
  2. TRIAMTERENE. [Concomitant]
     Active Substance: TRIAMTERENE
  3. AMITRIPTYLINE [Concomitant]
     Active Substance: AMITRIPTYLINE
  4. CHLORDAZEPOXIDE [Concomitant]
  5. CLOPIDOGREL [Concomitant]
     Active Substance: CLOPIDOGREL BISULFATE
  6. REFRESH [Concomitant]
     Active Substance: UNSPECIFIED INGREDIENT
  7. PANTOPRAZOLE [Concomitant]
     Active Substance: PANTOPRAZOLE
  8. FLAXSEED [Concomitant]
     Active Substance: FLAX SEED
  9. CEPHALEXIN. [Suspect]
     Active Substance: CEPHALEXIN
     Indication: TOOTH DISORDER
     Dosage: ?          QUANTITY:1 CAPSULE(S);?
     Route: 048
  10. CENTRUM SILVER [Concomitant]
     Active Substance: MINERALS\VITAMINS
  11. FOLIC ACID. [Concomitant]
     Active Substance: FOLIC ACID
  12. B-6 [Concomitant]
  13. NITRO [Concomitant]
     Active Substance: NITROGLYCERIN
  14. PRAVASTATIN. [Concomitant]
     Active Substance: PRAVASTATIN
  15. VITAMIN B12 [Concomitant]
     Active Substance: CYANOCOBALAMIN

REACTIONS (9)
  - Rectal haemorrhage [None]
  - Angina pectoris [None]
  - Chills [None]
  - Muscle spasms [None]
  - Pruritus [None]
  - Vomiting [None]
  - Diarrhoea [None]
  - Decreased appetite [None]
  - Rash [None]

NARRATIVE: CASE EVENT DATE: 20171108
